FAERS Safety Report 7231582-2 (Version None)
Quarter: 2011Q1

REPORT INFORMATION
  Report Type: 
  Country: None (occurrence: None)
  Receive Date: 20110118
  Receipt Date: 20110110
  Transmission Date: 20110831
  Serious: Yes (Hospitalization)
  Sender: FDA-Public Use
  Company Number: PHHO2010FR19376

PATIENT
  Sex: Male
  Weight: 55 kg

DRUGS (4)
  1. CELLCEPT [Suspect]
     Indication: RENAL TRANSPLANT
     Dosage: 500 MG, BID
     Route: 048
     Dates: start: 20100813
  2. NEORAL [Suspect]
     Indication: RENAL TRANSPLANT
     Dosage: 100 MG, BID
     Route: 048
     Dates: start: 20100823
  3. NEORAL [Suspect]
     Dosage: 125 MG, BID
     Route: 048
  4. CORTANCYL [Suspect]
     Indication: RENAL TRANSPLANT
     Dosage: 5 MG
     Route: 048
     Dates: start: 20100813

REACTIONS (9)
  - ASTHENIA [None]
  - BRONCHIAL DISORDER [None]
  - PYREXIA [None]
  - PNEUMONITIS [None]
  - ATELECTASIS [None]
  - DYSPNOEA EXERTIONAL [None]
  - CYTOMEGALOVIRUS INFECTION [None]
  - HYPOXIA [None]
  - COUGH [None]
